FAERS Safety Report 7558513-X (Version None)
Quarter: 2011Q2

REPORT INFORMATION
  Report Type: 
  Country: None (occurrence: None)
  Receive Date: 20110620
  Receipt Date: 20110611
  Transmission Date: 20111010
  Serious: Yes (Death, Hospitalization)
  Sender: FDA-Public Use
  Company Number: US-CELGENEUS-163-21880-11061815

PATIENT
  Age: 63 Year
  Sex: Male

DRUGS (10)
  1. COUMADIN [Concomitant]
     Route: 065
  2. HYTRIN [Concomitant]
     Route: 065
  3. LACTULOSE [Concomitant]
     Route: 065
  4. OMEPRAZOLE [Concomitant]
     Route: 065
  5. REVLIMID [Suspect]
     Indication: MULTIPLE MYELOMA
     Dosage: 10 MILLIGRAM
     Route: 048
     Dates: start: 20090520, end: 20091201
  6. DEXAMETHASONE [Concomitant]
     Route: 065
  7. AMIODARONE HCL [Concomitant]
     Route: 065
  8. ACYCLOVIR [Concomitant]
     Route: 065
  9. PROSCAR [Concomitant]
     Route: 065
  10. BACTRIM [Concomitant]
     Route: 065

REACTIONS (3)
  - RENAL FAILURE ACUTE [None]
  - DEATH [None]
  - PANCYTOPENIA [None]
